FAERS Safety Report 10506333 (Version 5)
Quarter: 2015Q2

REPORT INFORMATION
  Report Type: Report from Study
  Country: JP (occurrence: JP)
  Receive Date: 20141009
  Receipt Date: 20150603
  Transmission Date: 20150821
  Serious: Yes (Hospitalization, Other)
  Sender: FDA-Public Use
  Company Number: JP-JNJFOC-20140800783

PATIENT
  Age: 68 Year
  Sex: Male
  Weight: 67 kg

DRUGS (10)
  1. RIBAVIRIN. [Suspect]
     Active Substance: RIBAVIRIN
     Indication: CHRONIC HEPATITIS C
     Route: 048
     Dates: start: 20140416, end: 20140909
  2. GLAKAY [Concomitant]
     Active Substance: MENATETRENONE
     Indication: VITAMIN K DEFICIENCY
     Route: 048
     Dates: start: 20140813, end: 20141014
  3. REBAMIPIDE [Concomitant]
     Active Substance: REBAMIPIDE
     Indication: PROPHYLAXIS
     Route: 048
     Dates: start: 20140326
  4. PEGINTRON [Suspect]
     Active Substance: PEGINTERFERON ALFA-2B
     Indication: CHRONIC HEPATITIS C
     Route: 058
     Dates: start: 20140326, end: 20140903
  5. BLOPRESS [Concomitant]
     Active Substance: CANDESARTAN CILEXETIL
     Route: 048
  6. ALTAT [Concomitant]
     Route: 048
  7. RIBAVIRIN. [Suspect]
     Active Substance: RIBAVIRIN
     Indication: CHRONIC HEPATITIS C
     Route: 048
     Dates: start: 20140326, end: 20140415
  8. SOVRIAD [Suspect]
     Active Substance: SIMEPREVIR
     Indication: CHRONIC HEPATITIS C
     Route: 048
     Dates: start: 20140326, end: 20140619
  9. SELBEX [Concomitant]
     Active Substance: TEPRENONE
     Route: 048
  10. AMLODIPINE [Concomitant]
     Active Substance: AMLODIPINE BESYLATE
     Route: 048

REACTIONS (7)
  - Pyrexia [Recovered/Resolved]
  - Rash [Recovered/Resolved]
  - Anaemia [Recovered/Resolved]
  - Headache [Recovering/Resolving]
  - White blood cell count decreased [Recovered/Resolved]
  - Blood bilirubin increased [Recovered/Resolved]
  - Vitamin K deficiency [Recovered/Resolved]

NARRATIVE: CASE EVENT DATE: 20140326
